FAERS Safety Report 19721127 (Version 1)
Quarter: 2021Q3

REPORT INFORMATION
  Report Type: Report from Study
  Country: US (occurrence: US)
  Receive Date: 20210818
  Receipt Date: 20210818
  Transmission Date: 20211014
  Serious: Yes (Other)
  Sender: FDA-Public Use
  Company Number: US-SEATTLE GENETICS-2020SGN05803

PATIENT
  Age: 66 Year
  Sex: Female

DRUGS (30)
  1. TUCATINIB [Suspect]
     Active Substance: TUCATINIB
     Dosage: 150 MG, BID
     Route: 048
     Dates: start: 20201219
  2. TUCATINIB [Suspect]
     Active Substance: TUCATINIB
     Dosage: 150 MG, QD
     Route: 048
     Dates: start: 20201229
  3. FEMARA [Concomitant]
     Active Substance: LETROZOLE
     Dosage: 2.5 MG, QD
  4. PRINZIDE [Concomitant]
     Active Substance: HYDROCHLOROTHIAZIDE\LISINOPRIL
     Dosage: 12.5 MG, QD
     Route: 048
  5. SELENIUM [Concomitant]
     Active Substance: SELENIUM
  6. ZOFRAN [Concomitant]
     Active Substance: ONDANSETRON HYDROCHLORIDE
     Indication: NAUSEA
     Dosage: 8 MG, Q8HR AS NEEDED
     Route: 048
  7. ECOTRIN [Concomitant]
     Active Substance: ASPIRIN
     Dosage: 81 MG, QD
     Route: 048
  8. BRIMONIDINE [Concomitant]
     Active Substance: BRIMONIDINE TARTRATE
  9. COVID?19 VACCINE [Concomitant]
     Dosage: UNK
     Dates: start: 20210309
  10. TUCATINIB [Suspect]
     Active Substance: TUCATINIB
     Dosage: 150 MG,QD (3 DAYS)
     Route: 048
     Dates: start: 20201215
  11. XELODA [Suspect]
     Active Substance: CAPECITABINE
     Indication: HER2 POSITIVE BREAST CANCER
     Dosage: 1500 MG, BID (7 DAYS ON, 7 DAYS OFF)
     Route: 048
     Dates: start: 20201206, end: 20201209
  12. VITAMIN D3 [Concomitant]
     Active Substance: CHOLECALCIFEROL
     Dosage: UNK
     Route: 048
  13. LIPITOR [Concomitant]
     Active Substance: ATORVASTATIN CALCIUM
     Dosage: 40 MG, QD
     Route: 048
  14. TUCATINIB [Suspect]
     Active Substance: TUCATINIB
     Dosage: 150 MG, QD ( 3DAYS)
     Route: 048
     Dates: start: 20201222
  15. XELODA [Suspect]
     Active Substance: CAPECITABINE
     Dosage: 500 MG, BID (7 DAYS ON, 7 DAYS OFF)
     Route: 048
     Dates: start: 20210112
  16. XELODA [Suspect]
     Active Substance: CAPECITABINE
     Dosage: 1000 MG, BID (7 DAYS ON, 7 DAYS OFF)
     Route: 048
     Dates: start: 20210126
  17. FASLODEX [Concomitant]
     Active Substance: FULVESTRANT
  18. ZOFRAN [Concomitant]
     Active Substance: ONDANSETRON HYDROCHLORIDE
     Indication: VOMITING
  19. VITAMIN B12 [Concomitant]
     Active Substance: CYANOCOBALAMIN
     Route: 048
  20. TUCATINIB [Suspect]
     Active Substance: TUCATINIB
     Dosage: 100 MG, BID
     Route: 048
     Dates: start: 20201226
  21. XELODA [Suspect]
     Active Substance: CAPECITABINE
     Dosage: 500 MG, BID (7 DAYS ON, 7 DAYS OFF)
     Route: 048
     Dates: start: 20210209
  22. GLIMEPIRIDE. [Concomitant]
     Active Substance: GLIMEPIRIDE
     Dosage: 5 MG, BID
     Route: 048
  23. XALATAN [Concomitant]
     Active Substance: LATANOPROST
     Route: 047
  24. METFORMIN [Concomitant]
     Active Substance: METFORMIN HYDROCHLORIDE
     Dosage: 1000 MG, BID W/MEALS
  25. GLUCOSAMINE + CHONDROITIN TRIPLE STRENGTH [Concomitant]
     Dosage: 500 MG, QD
     Route: 048
  26. LEVOBUNOLOL HCL [Concomitant]
     Active Substance: LEVOBUNOLOL HYDROCHLORIDE
     Dosage: UNK
     Route: 047
  27. TUCATINIB [Suspect]
     Active Substance: TUCATINIB
     Indication: HER2 POSITIVE BREAST CANCER
     Dosage: 300 MG, BID
     Route: 048
     Dates: start: 20201203, end: 20201209
  28. HERCEPTIN [Concomitant]
     Active Substance: TRASTUZUMAB
  29. COREG [Concomitant]
     Active Substance: CARVEDILOL
     Dosage: 25 MG, BID, WITH MEALS
  30. VALIUM [Concomitant]
     Active Substance: DIAZEPAM
     Indication: ANXIETY
     Dosage: 5 MG

REACTIONS (23)
  - Unevaluable event [Unknown]
  - Positron emission tomogram abnormal [Unknown]
  - Haematocrit decreased [Unknown]
  - Blood glucose increased [Unknown]
  - Loss of personal independence in daily activities [Recovered/Resolved]
  - Abdominal distension [Recovering/Resolving]
  - Cataract [Unknown]
  - Diarrhoea [Recovering/Resolving]
  - Metastases to central nervous system [Unknown]
  - Venous angioma of brain [Unknown]
  - Decreased appetite [Recovering/Resolving]
  - Onychalgia [Recovered/Resolved]
  - Red blood cell count decreased [Unknown]
  - Inappropriate schedule of product administration [Unknown]
  - Aspartate aminotransferase increased [Recovering/Resolving]
  - Onychoclasis [Recovered/Resolved]
  - Carbohydrate antigen 27.29 increased [Unknown]
  - Blood creatinine increased [Unknown]
  - Alanine aminotransferase increased [Recovering/Resolving]
  - Pain of skin [Unknown]
  - Basophil percentage increased [Unknown]
  - Headache [Unknown]
  - Haemoglobin decreased [Unknown]

NARRATIVE: CASE EVENT DATE: 20210520
